FAERS Safety Report 20665204 (Version 1)
Quarter: 2022Q2

REPORT INFORMATION
  Report Type: Spontaneous
  Country: RU (occurrence: None)
  Receive Date: 20220401
  Receipt Date: 20220401
  Transmission Date: 20220720
  Serious: Yes (Death, Other)
  Sender: FDA-Public Use
  Company Number: RU-ROCHE-3060210

PATIENT
  Age: 63 Year

DRUGS (3)
  1. ATEZOLIZUMAB [Suspect]
     Active Substance: ATEZOLIZUMAB
     Indication: Non-small cell lung cancer
     Route: 041
  2. LEVOFLOXACIN [Concomitant]
     Active Substance: LEVOFLOXACIN
  3. FLUCONAZOLE [Concomitant]
     Active Substance: FLUCONAZOLE

REACTIONS (6)
  - Pulmonary haemorrhage [Fatal]
  - Loss of consciousness [Unknown]
  - Headache [Unknown]
  - Weight decreased [Unknown]
  - Breath odour [Unknown]
  - Pyrexia [Unknown]

NARRATIVE: CASE EVENT DATE: 20210521
